FAERS Safety Report 11018403 (Version 2)
Quarter: 2015Q2

REPORT INFORMATION
  Report Type: Spontaneous
  Country: US (occurrence: US)
  Receive Date: 20150412
  Receipt Date: 20150524
  Transmission Date: 20150821
  Serious: Yes (Other)
  Sender: FDA-Public Use
  Company Number: US-JNJFOC-20131112270

PATIENT

DRUGS (3)
  1. PALIFOSFAMIDE [Suspect]
     Active Substance: PALIFOSFAMIDE
     Indication: SARCOMA METASTATIC
     Dosage: DAYS 1, 2, 3 EVERY 21 DAYS FOR UP TO 6 CYCLES
     Route: 042
  2. DOXORUBICIN [Suspect]
     Active Substance: DOXORUBICIN
     Indication: SARCOMA METASTATIC
     Dosage: DAY 1
     Route: 042
  3. PLACEBO [Suspect]
     Active Substance: UNSPECIFIED INGREDIENT
     Indication: SARCOMA METASTATIC
     Dosage: DAYS 1, 2, 3 EVERY 21 DAYS FOR UP TO 6 CYCLES
     Route: 042

REACTIONS (10)
  - Dehydration [Unknown]
  - Fatigue [Unknown]
  - Febrile neutropenia [Unknown]
  - Neutropenia [Unknown]
  - Anaemia [Unknown]
  - Nausea [Unknown]
  - Diarrhoea [Unknown]
  - Product use issue [Unknown]
  - Constipation [Unknown]
  - Vomiting [Unknown]
